FAERS Safety Report 4465940-6 (Version None)
Quarter: 2004Q3

REPORT INFORMATION
  Report Type: 
  Country: None (occurrence: None)
  Receive Date: 20040930
  Receipt Date: 20040930
  Transmission Date: 20050211
  Serious: Yes (Hospitalization)
  Sender: FDA-Public Use
  Company Number: None

PATIENT
  Sex: Male

DRUGS (6)
  1. HALOPERIDOL [Suspect]
     Dosage: 2 MG BID ORAL
     Route: 048
  2. OMEPRAZOLE [Concomitant]
  3. MULTI-VITAMINS [Concomitant]
  4. VALPROIC ACID [Concomitant]
  5. PSYLLIUM [Concomitant]
  6. TRAZODONE HCL [Concomitant]

REACTIONS (3)
  - CONVULSION [None]
  - EXTRAPYRAMIDAL DISORDER [None]
  - TREMOR [None]
